FAERS Safety Report 12845663 (Version 1)
Quarter: 2016Q4

REPORT INFORMATION
  Report Type: Spontaneous
  Country: US (occurrence: US)
  Receive Date: 20161013
  Receipt Date: 20161013
  Transmission Date: 20170207
  Serious: Yes (Hospitalization)
  Sender: FDA-Public Use
  Company Number: US-ACTELION-A-US2016-143582

PATIENT
  Age: 40 Year
  Sex: Female

DRUGS (11)
  1. COUMADIN [Concomitant]
     Active Substance: WARFARIN SODIUM
  2. OXYCODONE [Concomitant]
     Active Substance: OXYCODONE
  3. DOCUSATE [Concomitant]
     Active Substance: DOCUSATE
  4. FERROUS FUMARATE [Concomitant]
     Active Substance: FERROUS FUMARATE
  5. TRACLEER [Concomitant]
     Active Substance: BOSENTAN
  6. ADCIRCA [Concomitant]
     Active Substance: TADALAFIL
  7. VELETRI [Suspect]
     Active Substance: EPOPROSTENOL
     Indication: PULMONARY ARTERIAL HYPERTENSION
     Dosage: 24 NG/KG, PER MIN
     Route: 042
  8. TRACLEER [Concomitant]
     Active Substance: BOSENTAN
  9. ALLOPURINOL. [Concomitant]
     Active Substance: ALLOPURINOL
  10. TRAMADOL. [Concomitant]
     Active Substance: TRAMADOL
  11. DIGOXIN. [Concomitant]
     Active Substance: DIGOXIN

REACTIONS (1)
  - Dyspnoea [Not Recovered/Not Resolved]

NARRATIVE: CASE EVENT DATE: 20161002
